FAERS Safety Report 7686691-0 (Version None)
Quarter: 2011Q3

REPORT INFORMATION
  Report Type: 
  Country: None (occurrence: None)
  Receive Date: 20110816
  Receipt Date: 20110627
  Transmission Date: 20111222
  Serious: Yes (Other)
  Sender: FDA-Public Use
  Company Number: PHHY2011US57306

PATIENT

DRUGS (4)
  1. ZANTAC [Concomitant]
  2. GLEEVEC [Suspect]
     Indication: NEUROFIBROMATOSIS
  3. PREVACID [Concomitant]
  4. INDERAL [Concomitant]

REACTIONS (1)
  - SPINAL CORD COMPRESSION [None]
